FAERS Safety Report 7496633-9 (Version None)
Quarter: 2011Q2

REPORT INFORMATION
  Report Type: 
  Country: None (occurrence: None)
  Receive Date: 20110523
  Receipt Date: 20110512
  Transmission Date: 20111010
  Serious: Yes (Hospitalization, Disabling)
  Sender: FDA-Public Use
  Company Number: A0729297A

PATIENT
  Age: 56 Year
  Sex: Male
  Weight: 91.8 kg

DRUGS (5)
  1. GLUCOPHAGE [Concomitant]
  2. VERPAMIL HCL [Concomitant]
  3. GLYNASE [Concomitant]
  4. AVANDIA [Suspect]
     Route: 048
     Dates: start: 20050621, end: 20070401
  5. GLYBURIDE [Concomitant]

REACTIONS (2)
  - MYOCARDIAL INFARCTION [None]
  - CORONARY ARTERY DISEASE [None]
